FAERS Safety Report 25263638 (Version 2)
Quarter: 2025Q2

REPORT INFORMATION
  Report Type: Spontaneous
  Country: PK (occurrence: PK)
  Receive Date: 20250502
  Receipt Date: 20250629
  Transmission Date: 20250716
  Serious: Yes (Other)
  Sender: AMGEN
  Company Number: PK-PFIZER INC-PV202300041357

PATIENT
  Age: 38 Year
  Sex: Male
  Weight: 82 kg

DRUGS (4)
  1. ENBREL [Suspect]
     Active Substance: ETANERCEPT
     Indication: Ankylosing spondylitis
     Dosage: 50 MG, WEEKLY
     Route: 058
     Dates: start: 20220722
  2. ENBREL [Suspect]
     Active Substance: ETANERCEPT
     Route: 058
     Dates: end: 202305
  3. SULFASALAZINE [Concomitant]
     Active Substance: SULFASALAZINE
     Dosage: 1 G, DAILY
  4. FOLIC ACID [Concomitant]
     Active Substance: FOLIC ACID
     Dosage: 1 DF, DAILY
     Route: 048

REACTIONS (4)
  - Ankylosing spondylitis [Unknown]
  - Joint range of motion decreased [Unknown]
  - Blood urea increased [Unknown]
  - Off label use [Unknown]

NARRATIVE: CASE EVENT DATE: 20230221
